FAERS Safety Report 17162381 (Version 2)
Quarter: 2020Q1

REPORT INFORMATION
  Report Type: Report from Study
  Country: CO (occurrence: CO)
  Receive Date: 20191217
  Receipt Date: 20200326
  Transmission Date: 20200409
  Serious: Yes (Other)
  Sender: FDA-Public Use
  Company Number: CO-ROCHE-2429966

PATIENT
  Sex: Female

DRUGS (3)
  1. XELODA [Suspect]
     Active Substance: CAPECITABINE
     Route: 048
  2. BEVACIZUMAB. [Suspect]
     Active Substance: BEVACIZUMAB
     Indication: PRODUCT USED FOR UNKNOWN INDICATION
     Route: 065
  3. XELODA [Suspect]
     Active Substance: CAPECITABINE
     Indication: PRODUCT USED FOR UNKNOWN INDICATION
     Route: 048

REACTIONS (20)
  - Movement disorder [Recovered/Resolved]
  - Nail discolouration [Recovered/Resolved]
  - Nail disorder [Unknown]
  - Skin discolouration [Unknown]
  - Feeling abnormal [Unknown]
  - Asthenia [Unknown]
  - Paraesthesia [Unknown]
  - Myalgia [Recovered/Resolved]
  - Pulmonary mass [Recovering/Resolving]
  - Hypoaesthesia [Unknown]
  - Abscess limb [Unknown]
  - Onychoclasis [Unknown]
  - Skin disorder [Unknown]
  - Necrosis [Recovered/Resolved]
  - Dry skin [Unknown]
  - Malaise [Recovered/Resolved]
  - Blister [Recovered/Resolved]
  - Pain in extremity [Unknown]
  - Feeling of despair [Unknown]
  - Onychomadesis [Unknown]
